FAERS Safety Report 25744031 (Version 1)
Quarter: 2025Q3

REPORT INFORMATION
  Report Type: Spontaneous
  Country: CN (occurrence: CN)
  Receive Date: 20250831
  Receipt Date: 20250831
  Transmission Date: 20251020
  Serious: Yes (Hospitalization, Other)
  Sender: ABBVIE
  Company Number: CN-ABBVIE-6436768

PATIENT
  Age: 40 Year
  Sex: Male
  Weight: 80 kg

DRUGS (2)
  1. VENETOCLAX [Suspect]
     Active Substance: VENETOCLAX
     Indication: Neoplasm malignant
     Dosage: 400 MILLIGRAM, VEN 400 MG D1-7
     Route: 048
     Dates: start: 20250807, end: 20250814
  2. CYTARABINE [Suspect]
     Active Substance: CYTARABINE
     Indication: Neoplasm malignant
     Dosage: CYTARABINE (2 G/M2) BID D1-3, INTRAVENOUS DRIP
     Route: 065
     Dates: start: 20250808, end: 20250811

REACTIONS (2)
  - Myelosuppression [Recovering/Resolving]
  - Granulocytopenia [Recovering/Resolving]

NARRATIVE: CASE EVENT DATE: 20250816
